FAERS Safety Report 10780019 (Version 5)
Quarter: 2016Q4

REPORT INFORMATION
  Report Type: Report from Study
  Country: KR (occurrence: KR)
  Receive Date: 20150210
  Receipt Date: 20161010
  Transmission Date: 20170206
  Serious: Yes (Other)
  Sender: FDA-Public Use
  Company Number: KR-BAYER-2015-014189

PATIENT
  Age: 33 Year
  Sex: Female

DRUGS (1)
  1. BETAFERON [Suspect]
     Active Substance: INTERFERON BETA-1B
     Indication: MULTIPLE SCLEROSIS
     Dosage: 1 ML, QOD
     Route: 058
     Dates: start: 20140601

REACTIONS (4)
  - Urinary tract inflammation [Recovered/Resolved]
  - Perinatal depression [None]
  - Multiple sclerosis [None]
  - Multiple sclerosis [None]

NARRATIVE: CASE EVENT DATE: 20160127
